FAERS Safety Report 5096203-6 (Version None)
Quarter: 2006Q3

REPORT INFORMATION
  Report Type: 
  Country: None (occurrence: None)
  Receive Date: 20060905
  Receipt Date: 20060814
  Transmission Date: 20061208
  Serious: Yes (Other)
  Sender: FDA-Public Use
  Company Number: BR-ROCHE-459763

PATIENT
  Age: 27 Year
  Sex: Female
  Weight: 68.5 kg

DRUGS (2)
  1. XENICAL [Suspect]
     Indication: OBESITY
     Route: 048
     Dates: start: 20060715, end: 20060814
  2. PLENTY [Concomitant]
     Route: 048

REACTIONS (2)
  - ABDOMINAL PAIN UPPER [None]
  - CHOLELITHIASIS [None]
